APPROVED DRUG PRODUCT: LEVOCETIRIZINE DIHYDROCHLORIDE
Active Ingredient: LEVOCETIRIZINE DIHYDROCHLORIDE
Strength: 5MG
Dosage Form/Route: TABLET;ORAL
Application: A211443 | Product #001
Applicant: APOTEX INC
Approved: Apr 21, 2021 | RLD: No | RS: No | Type: DISCN